FAERS Safety Report 5175073-1 (Version None)
Quarter: 2006Q4

REPORT INFORMATION
  Report Type: 
  Country: None (occurrence: None)
  Receive Date: 20061214
  Receipt Date: 20060525
  Transmission Date: 20070319
  Serious: No
  Sender: FDA-Public Use
  Company Number: US-AMGEN-KDL180957

PATIENT
  Sex: Female

DRUGS (2)
  1. ENBREL [Suspect]
     Indication: RHEUMATOID ARTHRITIS
     Route: 058
     Dates: start: 20060515
  2. ACTONEL [Concomitant]

REACTIONS (6)
  - ABDOMINAL DISTENSION [None]
  - BACK PAIN [None]
  - CONDITION AGGRAVATED [None]
  - CONSTIPATION [None]
  - DRY MOUTH [None]
  - GINGIVAL BLEEDING [None]
